FAERS Safety Report 14350409 (Version 1)
Quarter: 2018Q1

REPORT INFORMATION
  Report Type: Spontaneous
  Country: FI (occurrence: FI)
  Receive Date: 20180104
  Receipt Date: 20180104
  Transmission Date: 20180509
  Serious: Yes (Other)
  Sender: FDA-Public Use
  Company Number: FI-BAYER-2018-001129

PATIENT
  Age: 0 Day
  Sex: Male
  Weight: 1.79 kg

DRUGS (2)
  1. MIRENA [Suspect]
     Active Substance: LEVONORGESTREL
  2. MIRENA [Suspect]
     Active Substance: LEVONORGESTREL
     Dosage: UNK
     Dates: end: 20170427

REACTIONS (3)
  - Foetal exposure during pregnancy [None]
  - Premature baby [None]
  - Low birth weight baby [None]

NARRATIVE: CASE EVENT DATE: 20171103
